FAERS Safety Report 8327749 (Version 8)
Quarter: 2015Q2

REPORT INFORMATION
  Report Type: Report from Study
  Country: NL (occurrence: NL)
  Receive Date: 20120109
  Receipt Date: 20150612
  Transmission Date: 20150821
  Serious: Yes (Hospitalization)
  Sender: FDA-Public Use
  Company Number: PHHO2011NL019256

PATIENT
  Age: 59 Year
  Sex: Male
  Weight: 75 kg

DRUGS (7)
  1. MYCOPHENOLATE MOFETIL. [Suspect]
     Active Substance: MYCOPHENOLATE MOFETIL
     Indication: HEART TRANSPLANT
     Dosage: 500 MG, BID
     Route: 048
     Dates: start: 20110430
  2. PROSTIGMIN [Suspect]
     Active Substance: NEOSTIGMINE BROMIDE
     Indication: HEART TRANSPLANT
     Dosage: 10 MG, QD
     Route: 065
     Dates: start: 201104
  3. BLINDED NO TREATMENT RECEIVED [Suspect]
     Active Substance: UNSPECIFIED INGREDIENT
     Indication: CARDIAC FAILURE
     Dosage: CODE NOT BROKEN
     Route: 048
     Dates: start: 20101008, end: 20110402
  4. PREDNISONE. [Suspect]
     Active Substance: PREDNISONE
     Indication: HEART TRANSPLANT
     Dosage: 25 MG, QD
     Route: 048
     Dates: start: 20110430
  5. BLINDED ENALAPRIL [Suspect]
     Active Substance: ENALAPRIL
     Indication: CARDIAC FAILURE
     Dosage: CODE NOT BROKEN
     Route: 048
     Dates: start: 20101008, end: 20110402
  6. TACROLIMUS. [Suspect]
     Active Substance: TACROLIMUS
     Indication: HEART TRANSPLANT
     Dosage: 7 MG, BID
     Route: 048
     Dates: start: 201104
  7. BLINDED ALISKIREN [Suspect]
     Active Substance: ALISKIREN
     Indication: CARDIAC FAILURE
     Dosage: CODE NOT BROKEN
     Route: 048
     Dates: start: 20101008, end: 20110402

REACTIONS (4)
  - Staphylococcal bacteraemia [Recovered/Resolved]
  - Concomitant disease progression [Recovered/Resolved]
  - Arthritis [Recovered/Resolved]
  - Localised infection [Recovered/Resolved]

NARRATIVE: CASE EVENT DATE: 20110901
